FAERS Safety Report 16243529 (Version 1)
Quarter: 2019Q2

REPORT INFORMATION
  Report Type: Spontaneous
  Country: US (occurrence: US)
  Receive Date: 20190426
  Receipt Date: 20190426
  Transmission Date: 20190711
  Serious: No
  Sender: FDA-Public Use
  Company Number: US-CELGENEUS-USA-20190404531

PATIENT
  Sex: Female

DRUGS (2)
  1. POMALYST [Suspect]
     Active Substance: POMALIDOMIDE
     Indication: PLASMA CELL MYELOMA
     Dosage: 4 MILLIGRAM
     Route: 048
     Dates: start: 201902, end: 20190408
  2. POMALYST [Suspect]
     Active Substance: POMALIDOMIDE
     Dosage: 3 MILLIGRAM
     Route: 048
     Dates: start: 201904

REACTIONS (14)
  - Dry skin [Recovered/Resolved]
  - Hypoaesthesia [Unknown]
  - Oedema peripheral [Unknown]
  - Tongue oedema [Unknown]
  - Eye oedema [Recovered/Resolved]
  - Oedema mouth [Recovered/Resolved]
  - Full blood count decreased [Recovered/Resolved]
  - Dyspnoea [Unknown]
  - Anxiety [Recovered/Resolved]
  - White blood cell count decreased [Unknown]
  - Rash [Recovered/Resolved]
  - Swelling [Unknown]
  - Tongue eruption [Recovered/Resolved]
  - Hypoaesthesia oral [Unknown]

NARRATIVE: CASE EVENT DATE: 2019
